FAERS Safety Report 4289268-2 (Version None)
Quarter: 2004Q1

REPORT INFORMATION
  Report Type: 
  Country: None (occurrence: None)
  Receive Date: 20040206
  Receipt Date: 20040130
  Transmission Date: 20041129
  Serious: Yes (Other)
  Sender: FDA-Public Use
  Company Number: 200307545

PATIENT
  Age: 68 Year
  Sex: Female

DRUGS (15)
  1. TYLENOL [Suspect]
     Indication: HEADACHE
     Dosage: 1300 MG ONCE PO
     Route: 048
     Dates: start: 20030401
  2. ESTRADIOL [Concomitant]
  3. VIOXX [Concomitant]
  4. ZOCOR [Concomitant]
  5. COZAAR [Concomitant]
  6. CLARITIN [Concomitant]
  7. ULTRAM [Concomitant]
  8. SKELAXIN [Concomitant]
  9. DARVOCET (PROPOXYPHENE/ACETAMINOPHEN) [Concomitant]
  10. HUMIBID (GUAIFENESIN) [Concomitant]
  11. TRAZODONE HCL [Concomitant]
  12. SYNTHROID [Concomitant]
  13. ASPIRIN [Concomitant]
  14. FLONASE [Concomitant]
  15. UNSPECIFIED ANTIBIOTICS [Concomitant]

REACTIONS (8)
  - ASTHENIA [None]
  - ATRIOVENTRICULAR BLOCK FIRST DEGREE [None]
  - DIZZINESS [None]
  - DYSPEPSIA [None]
  - DYSPNOEA [None]
  - HEARING IMPAIRED [None]
  - NAUSEA [None]
  - VERTIGO [None]
